FAERS Safety Report 4865066-3 (Version None)
Quarter: 2005Q4

REPORT INFORMATION
  Report Type: 
  Country: None (occurrence: None)
  Receive Date: 20051219
  Receipt Date: 20051207
  Transmission Date: 20060501
  Serious: Yes (Hospitalization)
  Sender: FDA-Public Use
  Company Number: 05H-056-0304075-00

PATIENT
  Age: 53 Year
  Sex: Female

DRUGS (2)
  1. PENTOTHAL [Suspect]
     Indication: ANAESTHESIA
     Dosage: INTRAVENOUS
     Route: 042
     Dates: start: 20051109, end: 20051109
  2. SUFENTANIL            (SUFENTANIL) [Suspect]
     Indication: ANAESTHESIA
     Dosage: INTRAVENOUS
     Route: 042
     Dates: start: 20051109, end: 20051109

REACTIONS (3)
  - BRONCHOSPASM [None]
  - HYPOTENSION [None]
  - RASH PAPULAR [None]
